FAERS Safety Report 12139797 (Version 2)
Quarter: 2016Q1

REPORT INFORMATION
  Report Type: Spontaneous
  Country: JP (occurrence: JP)
  Receive Date: 20160303
  Receipt Date: 20160321
  Transmission Date: 20160526
  Serious: Yes (Hospitalization, Other)
  Sender: FDA-Public Use
  Company Number: PHJP2016JP004028

PATIENT
  Age: 1 Year
  Sex: Male

DRUGS (2)
  1. AFINITOR [Suspect]
     Active Substance: EVEROLIMUS
     Indication: ASTROCYTOMA, LOW GRADE
     Dosage: 1.25 MG, QOD
     Route: 048
     Dates: start: 20141211, end: 20150714
  2. AFINITOR [Suspect]
     Active Substance: EVEROLIMUS
     Dosage: 1.25 MG, (TWICE EVERY THREE DAYS)
     Route: 048
     Dates: start: 20150715

REACTIONS (6)
  - Febrile convulsion [Unknown]
  - Human herpesvirus 7 infection [Unknown]
  - Hepatic function abnormal [Unknown]
  - Renal impairment [Unknown]
  - Encephalopathy [Not Recovered/Not Resolved]
  - Disseminated intravascular coagulation [Unknown]

NARRATIVE: CASE EVENT DATE: 20160220
